FAERS Safety Report 4585311-1 (Version None)
Quarter: 2005Q1

REPORT INFORMATION
  Report Type: 
  Country: None (occurrence: None)
  Receive Date: 20050217
  Receipt Date: 20050213
  Transmission Date: 20050727
  Serious: Yes (Other)
  Sender: FDA-Public Use
  Company Number: PHBS2005TW02294

PATIENT
  Age: 86 Year
  Sex: Male

DRUGS (1)
  1. EXELON [Suspect]
     Indication: DEMENTIA ALZHEIMER'S TYPE
     Dosage: 3 MG/D
     Route: 048

REACTIONS (3)
  - EATING DISORDER [None]
  - THROMBOANGIITIS OBLITERANS [None]
  - WALKING DISABILITY [None]
